FAERS Safety Report 15427922 (Version 1)
Quarter: 2018Q3

REPORT INFORMATION
  Report Type: Report from Study
  Country: US (occurrence: US)
  Receive Date: 20180926
  Receipt Date: 20180926
  Transmission Date: 20181010
  Serious: Yes (Hospitalization)
  Sender: FDA-Public Use
  Company Number: US-ROCHE-2188398

PATIENT
  Age: 72 Year
  Sex: Female
  Weight: 66.4 kg

DRUGS (2)
  1. ATEZOLIZUMAB. [Suspect]
     Active Substance: ATEZOLIZUMAB
     Indication: B-CELL LYMPHOMA
     Dosage: ATEZOLIZUMAB 1200 MG BY VEIN EVERY 3 WEEKS (AS PER PROTOCOL).
     Route: 042
  2. LAM?002A [Suspect]
     Active Substance: INVESTIGATIONAL PRODUCT
     Indication: B-CELL LYMPHOMA
     Dosage: LAM?002A 125MG TWO TIMES DAILY BY MOUTH EVERY DAY
     Route: 048
     Dates: start: 20180918, end: 20180918

REACTIONS (1)
  - Febrile neutropenia [Not Recovered/Not Resolved]

NARRATIVE: CASE EVENT DATE: 20180918
